FAERS Safety Report 7781368-5 (Version None)
Quarter: 2011Q3

REPORT INFORMATION
  Report Type: 
  Country: None (occurrence: None)
  Receive Date: 20110923
  Receipt Date: 20110919
  Transmission Date: 20111222
  Serious: Yes (Other)
  Sender: FDA-Public Use
  Company Number: GER/UKI/11/0021228

PATIENT
  Age: 46 Year
  Sex: Female

DRUGS (1)
  1. CETIRIZINE [Suspect]
     Indication: PRODUCT USED FOR UNKNOWN INDICATION

REACTIONS (12)
  - SOMNOLENCE [None]
  - FEELING DRUNK [None]
  - PALPITATIONS [None]
  - NAUSEA [None]
  - AGGRESSION [None]
  - HEADACHE [None]
  - TEARFULNESS [None]
  - DYSARTHRIA [None]
  - INAPPROPRIATE AFFECT [None]
  - FEAR [None]
  - MALAISE [None]
  - SENSATION OF HEAVINESS [None]
